FAERS Safety Report 4638595-5 (Version None)
Quarter: 2005Q2

REPORT INFORMATION
  Report Type: 
  Country: None (occurrence: None)
  Receive Date: 20050418
  Receipt Date: 20050418
  Transmission Date: 20051028
  Serious: No
  Sender: FDA-Public Use
  Company Number: None

PATIENT

DRUGS (3)
  1. IPATROPIUM BROMIDE [Suspect]
     Dosage: INHALANT
     Route: 055
  2. XOPENEX [Suspect]
     Dosage: INHALANT
     Route: 055
  3. XOPENEX [Suspect]
     Dosage: INHALANT
     Route: 055

REACTIONS (1)
  - MEDICATION ERROR [None]
